FAERS Safety Report 25495977 (Version 1)
Quarter: 2025Q2

REPORT INFORMATION
  Report Type: Spontaneous
  Country: RU (occurrence: RU)
  Receive Date: 20250630
  Receipt Date: 20250630
  Transmission Date: 20250717
  Serious: Yes (Death, Disabling)
  Sender: NOVARTIS
  Company Number: RU-002147023-NVSC2025RU081305

PATIENT

DRUGS (2)
  1. DABRAFENIB [Suspect]
     Active Substance: DABRAFENIB
     Indication: Product used for unknown indication
     Route: 048
     Dates: start: 202203
  2. TRAMETINIB [Suspect]
     Active Substance: TRAMETINIB
     Indication: Product used for unknown indication
     Route: 048
     Dates: start: 202203

REACTIONS (11)
  - Death [Fatal]
  - Dizziness [Recovering/Resolving]
  - Nausea [Recovering/Resolving]
  - Disease progression [Recovering/Resolving]
  - Dyspnoea [Recovering/Resolving]
  - Haemoptysis [Recovering/Resolving]
  - Decreased appetite [Recovering/Resolving]
  - Dizziness [Recovering/Resolving]
  - Nausea [Recovering/Resolving]
  - Vomiting [Recovering/Resolving]
  - Speech disorder [Recovering/Resolving]

NARRATIVE: CASE EVENT DATE: 20220924
